FAERS Safety Report 7652672-6 (Version None)
Quarter: 2011Q3

REPORT INFORMATION
  Report Type: 
  Country: None (occurrence: None)
  Receive Date: 20110803
  Receipt Date: 20110721
  Transmission Date: 20111222
  Serious: Yes (Other)
  Sender: FDA-Public Use
  Company Number: US-ELI_LILLY_AND_COMPANY-US201107005847

PATIENT
  Sex: Female

DRUGS (1)
  1. ZYPREXA [Suspect]
     Dosage: 20 MG, EACH EVENING
     Dates: start: 20010101

REACTIONS (3)
  - METASTASES TO STOMACH [None]
  - BREAST CANCER [None]
  - PLEURAL EFFUSION [None]
